FAERS Safety Report 5166770-2 (Version None)
Quarter: 2006Q4

REPORT INFORMATION
  Report Type: 
  Country: None (occurrence: None)
  Receive Date: 20061204
  Receipt Date: 20061204
  Transmission Date: 20070319
  Serious: Yes (Death)
  Sender: FDA-Public Use
  Company Number: None

PATIENT
  Age: 17 Year
  Sex: Male
  Weight: 104.3273 kg

DRUGS (3)
  1. ABILIFY [Suspect]
     Indication: AFFECTIVE DISORDER
     Dosage: 5MG DAILY PO
     Route: 048
     Dates: start: 20050929, end: 20060906
  2. ABILIFY [Suspect]
     Indication: ANXIETY
     Dosage: 5MG DAILY PO
     Route: 048
     Dates: start: 20050929, end: 20060906
  3. ABILIFY [Suspect]
     Indication: ATTENTION DEFICIT/HYPERACTIVITY DISORDER
     Dosage: 5MG DAILY PO
     Route: 048
     Dates: start: 20050929, end: 20060906

REACTIONS (3)
  - ACUTE PULMONARY OEDEMA [None]
  - RESPIRATORY ARREST [None]
  - SUDDEN DEATH [None]
